FAERS Safety Report 10573126 (Version 1)
Quarter: 2014Q4

REPORT INFORMATION
  Report Type: Spontaneous
  Country: US (occurrence: None)
  Receive Date: 20141107
  Receipt Date: 20141107
  Transmission Date: 20150529
  Serious: Yes (Other)
  Sender: FDA-Public Use
  Company Number: None

PATIENT
  Age: 23 Year
  Sex: Female
  Weight: 73.94 kg

DRUGS (1)
  1. MIRENA [Suspect]
     Active Substance: LEVONORGESTREL
     Indication: CONTRACEPTION
     Dates: start: 20130416, end: 20130720

REACTIONS (3)
  - Treatment noncompliance [None]
  - Menometrorrhagia [None]
  - Device dislocation [None]

NARRATIVE: CASE EVENT DATE: 20130720
